FAERS Safety Report 7892859-0 (Version None)
Quarter: 2011Q4

REPORT INFORMATION
  Report Type: 
  Country: None (occurrence: None)
  Receive Date: 20111104
  Receipt Date: 20111031
  Transmission Date: 20120403
  Serious: Yes (Hospitalization)
  Sender: FDA-Public Use
  Company Number: CZ-SANOFI-AVENTIS-2011SA070441

PATIENT
  Age: 74 Year
  Sex: Male
  Weight: 110 kg

DRUGS (4)
  1. ELIGARD [Suspect]
     Route: 058
     Dates: start: 20110719, end: 20110719
  2. CASODEX [Suspect]
     Indication: PROSTATE CANCER
     Route: 048
     Dates: start: 20100527, end: 20100727
  3. ANTIHYPERTENSIVES [Concomitant]
     Dosage: BASELINE, WEEK 1, 13, 25, 31, 37, 49
  4. ELIGARD [Suspect]
     Indication: PROSTATE CANCER
     Route: 058
     Dates: start: 20100527, end: 20100527

REACTIONS (1)
  - PULMONARY EMBOLISM [None]
